FAERS Safety Report 9486400 (Version 1)
Quarter: 2013Q3

REPORT INFORMATION
  Report Type: Spontaneous
  Country: US (occurrence: US)
  Receive Date: 20130829
  Receipt Date: 20130829
  Transmission Date: 20140515
  Serious: Yes (Hospitalization)
  Sender: FDA-Public Use
  Company Number: US-COVIDIEN/TYCO HEALTHCARE/MALLINCKRODT-T201304185

PATIENT
  Sex: Female

DRUGS (1)
  1. GABLOFEN [Suspect]
     Indication: MUSCLE SPASTICITY
     Dosage: 60 MCG/DAY
     Route: 037

REACTIONS (4)
  - Infection [Recovering/Resolving]
  - Mental status changes [Recovering/Resolving]
  - Pyrexia [Recovering/Resolving]
  - Muscle spasticity [Recovering/Resolving]
